FAERS Safety Report 7094106-9 (Version None)
Quarter: 2010Q4

REPORT INFORMATION
  Report Type: 
  Country: None (occurrence: None)
  Receive Date: 20101110
  Receipt Date: 20101028
  Transmission Date: 20110411
  Serious: Yes (Hospitalization)
  Sender: FDA-Public Use
  Company Number: US-ELI_LILLY_AND_COMPANY-US201010007305

PATIENT
  Age: 71 Year
  Sex: Female

DRUGS (6)
  1. ADCIRCA [Suspect]
     Dosage: UNK, UNKNOWN
  2. FLOVENT [Concomitant]
     Dosage: 1.5 MG, UNK
  3. TRACLEER [Concomitant]
     Dosage: UNK, UNK
  4. DIGOXIN [Concomitant]
  5. LASIX [Concomitant]
     Dosage: 80 MG, UNK
  6. MAGNESIUM [Concomitant]

REACTIONS (2)
  - HEART RATE INCREASED [None]
  - OXYGEN SATURATION DECREASED [None]
